FAERS Safety Report 8246808-6 (Version None)
Quarter: 2012Q1

REPORT INFORMATION
  Report Type: 
  Country: None (occurrence: None)
  Receive Date: 20120330
  Receipt Date: 20120323
  Transmission Date: 20120608
  Serious: Yes (Hospitalization, Other)
  Sender: FDA-Public Use
  Company Number: US-NOVOPROD-342975

PATIENT
  Age: 67 Year
  Sex: Male
  Weight: 134.24 kg

DRUGS (5)
  1. TRICOR [Concomitant]
     Indication: HYPERLIPIDAEMIA
     Dosage: UNKNOWN
     Route: 065
     Dates: end: 20120101
  2. METOPROLOL SUCCINATE [Concomitant]
     Indication: PRODUCT USED FOR UNKNOWN INDICATION
     Dosage: UNKNOWN
     Route: 065
     Dates: end: 20120101
  3. LASIX [Concomitant]
     Indication: PRODUCT USED FOR UNKNOWN INDICATION
     Dosage: UNKNOWN
     Route: 065
     Dates: end: 20120101
  4. VYTORIN [Concomitant]
     Indication: HYPERLIPIDAEMIA
     Dosage: UNKNOWN
     Route: 065
     Dates: end: 20120101
  5. VICTOZA [Suspect]
     Indication: DIABETES MELLITUS INADEQUATE CONTROL
     Dosage: UNKNOWN
     Route: 058

REACTIONS (8)
  - CEREBROVASCULAR ACCIDENT [None]
  - DEHYDRATION [None]
  - RENAL FAILURE ACUTE [None]
  - ALCOHOL DETOXIFICATION [None]
  - ALCOHOLIC PANCREATITIS [None]
  - SYSTEMIC INFLAMMATORY RESPONSE SYNDROME [None]
  - HYPOTENSION [None]
  - ELECTROLYTE IMBALANCE [None]
